FAERS Safety Report 9255914 (Version 1)
Quarter: 2013Q2

REPORT INFORMATION
  Report Type: Spontaneous
  Country: GR (occurrence: GR)
  Receive Date: 20130425
  Receipt Date: 20130425
  Transmission Date: 20140414
  Serious: Yes (Death, Hospitalization)
  Sender: FDA-Public Use
  Company Number: GR-B.I. PHARMACEUTICALS,INC./RIDGEFIELD-2013-BI-11169GB

PATIENT
  Sex: Female

DRUGS (1)
  1. PRADAXA [Suspect]
     Dates: start: 201302

REACTIONS (2)
  - Haemorrhage [Fatal]
  - Blood count abnormal [Fatal]
